FAERS Safety Report 5029421-3 (Version None)
Quarter: 2006Q2

REPORT INFORMATION
  Report Type: 
  Country: None (occurrence: None)
  Receive Date: 20060613
  Receipt Date: 20060531
  Transmission Date: 20061013
  Serious: Yes (Hospitalization)
  Sender: FDA-Public Use
  Company Number: 2006058588

PATIENT
  Age: 58 Year
  Sex: Female
  Weight: 121 kg

DRUGS (2)
  1. SUTENT [Suspect]
     Indication: RENAL CELL CARCINOMA STAGE UNSPECIFIED
     Dosage: 50 + 37.5 MG (50 MG, CYCLIC), ORAL - SEE IMAGE
     Route: 048
     Dates: start: 20060323, end: 20060418
  2. SUTENT [Suspect]
     Indication: RENAL CELL CARCINOMA STAGE UNSPECIFIED
     Dosage: 50 + 37.5 MG (50 MG, CYCLIC), ORAL - SEE IMAGE
     Route: 048
     Dates: start: 20060504, end: 20060530

REACTIONS (4)
  - COAGULOPATHY [None]
  - GINGIVAL BLEEDING [None]
  - INTERNATIONAL NORMALISED RATIO INCREASED [None]
  - TOOTH IMPACTED [None]
